FAERS Safety Report 8115879-X (Version None)
Quarter: 2012Q1

REPORT INFORMATION
  Report Type: 
  Country: None (occurrence: None)
  Receive Date: 20120118
  Receipt Date: 20120104
  Transmission Date: 20120608
  Serious: Yes (Other)
  Sender: FDA-Public Use
  Company Number: 2011PROUSA00826

PATIENT
  Age: 62 Year
  Sex: Male

DRUGS (12)
  1. INSULIN (INSULIN) [Concomitant]
  2. PROVENGE [Suspect]
     Indication: PROSTATE CANCER METASTATIC
     Dosage: 250 ML, SINGLE, INTRAVENOUS, 250 ML, SINGLE, INTRAVENOUS, 250 ML, SINGLE, INTRAVENOUS
     Route: 042
     Dates: start: 20111126, end: 20111128
  3. PROVENGE [Suspect]
     Indication: PROSTATE CANCER METASTATIC
     Dosage: 250 ML, SINGLE, INTRAVENOUS, 250 ML, SINGLE, INTRAVENOUS, 250 ML, SINGLE, INTRAVENOUS
     Route: 042
     Dates: start: 20111230, end: 20111230
  4. PROVENGE [Suspect]
     Indication: PROSTATE CANCER METASTATIC
     Dosage: 250 ML, SINGLE, INTRAVENOUS, 250 ML, SINGLE, INTRAVENOUS, 250 ML, SINGLE, INTRAVENOUS
     Route: 042
     Dates: start: 20111212, end: 20111212
  5. IBUPROFEN [Concomitant]
  6. PROVENGE [Suspect]
  7. DIAZIDE (HYDRALAZINE HYDROCHLORIDE) [Concomitant]
  8. METFORMIN HCL [Concomitant]
  9. DENOSUMAB (DENOSUMAB) [Concomitant]
  10. LISINOPRIL [Concomitant]
  11. PROVENGE [Suspect]
  12. TRELSTAR [Concomitant]

REACTIONS (2)
  - MEMORY IMPAIRMENT [None]
  - TRANSIENT ISCHAEMIC ATTACK [None]
